FAERS Safety Report 12891376 (Version 2)
Quarter: 2016Q4

REPORT INFORMATION
  Report Type: Spontaneous
  Country: US (occurrence: US)
  Receive Date: 20161028
  Receipt Date: 20161229
  Transmission Date: 20170207
  Serious: No
  Sender: FDA-Public Use
  Company Number: US-ASTRAZENECA-2008BM04124

PATIENT
  Age: 22027 Day
  Sex: Female
  Weight: 104.3 kg

DRUGS (3)
  1. BYETTA [Suspect]
     Active Substance: EXENATIDE
     Dosage: 10.0UG UNKNOWN
     Route: 058
  2. BYDUREON [Suspect]
     Active Substance: EXENATIDE
     Indication: TYPE 2 DIABETES MELLITUS
     Dosage: 10 UG ONCE A WEEK
     Route: 058
  3. BYDUREON [Suspect]
     Active Substance: EXENATIDE
     Indication: TYPE 2 DIABETES MELLITUS
     Dosage: 10.0UG UNKNOWN
     Route: 058
     Dates: start: 20161015

REACTIONS (5)
  - Wrong technique in product usage process [Unknown]
  - Drug dispensing error [Unknown]
  - Blood glucose increased [Unknown]
  - Pain in extremity [Unknown]
  - Product quality issue [Unknown]

NARRATIVE: CASE EVENT DATE: 20161015
